FAERS Safety Report 4843523-3 (Version None)
Quarter: 2005Q4

REPORT INFORMATION
  Report Type: 
  Country: None (occurrence: None)
  Receive Date: 20051202
  Receipt Date: 20051122
  Transmission Date: 20060501
  Serious: Yes (Death, Other)
  Sender: FDA-Public Use
  Company Number: IT-JNJFOC-20051101094

PATIENT
  Sex: Male
  Weight: 62 kg

DRUGS (5)
  1. REOPRO [Suspect]
     Dosage: 4.0 ML IN 50 ML DILUENT AT 3.1 ML/H, TOTAL INFUSION 37.2 ML.
     Route: 042
  2. REOPRO [Suspect]
     Indication: ACUTE MYOCARDIAL INFARCTION
     Route: 042
  3. RETEPLASE [Suspect]
     Indication: ACUTE MYOCARDIAL INFARCTION
     Route: 042
  4. HEPARIN [Concomitant]
     Route: 042
  5. HEPARIN [Concomitant]
     Route: 042

REACTIONS (7)
  - BLOOD PRESSURE DECREASED [None]
  - BRONCHOPNEUMONIA [None]
  - CARDIAC FAILURE [None]
  - CARDIOGENIC SHOCK [None]
  - DRUG INTERACTION [None]
  - SEPTIC SHOCK [None]
  - URINARY TRACT INFECTION [None]
